FAERS Safety Report 8767261 (Version 2)
Quarter: 2012Q4

REPORT INFORMATION
  Report Type: 
  Country: KR (occurrence: KR)
  Receive Date: 20120904
  Receipt Date: 20121109
  Transmission Date: 20130627
  Serious: Yes (Hospitalization)
  Sender: FDA-Public Use
  Company Number: KR-US-EMD SERONO, INC.-7157574

PATIENT
  Sex: Female
  Weight: 23 kg

DRUGS (1)
  1. SAIZEN [Suspect]
     Indication: GROWTH RETARDATION
     Route: 058
     Dates: start: 20101115, end: 201208

REACTIONS (3)
  - White blood cell count decreased [Unknown]
  - Pallor [Unknown]
  - Asthenia [Unknown]
